FAERS Safety Report 10311865 (Version 2)
Quarter: 2014Q4

REPORT INFORMATION
  Report Type: Report from Study
  Country: DE (occurrence: DE)
  Receive Date: 20140717
  Receipt Date: 20141229
  Transmission Date: 20150528
  Serious: Yes (Hospitalization, Other)
  Sender: FDA-Public Use
  Company Number: DE-ABBVIE-14P-062-1258457-00

PATIENT
  Age: 62 Year
  Sex: Female
  Weight: 70 kg

DRUGS (14)
  1. HUMIRA [Suspect]
     Active Substance: ADALIMUMAB
     Route: 058
     Dates: start: 201210, end: 201301
  2. PREDNISONE. [Suspect]
     Active Substance: PREDNISONE
     Indication: PRODUCT USED FOR UNKNOWN INDICATION
     Dosage: 1-0-0
     Route: 065
  3. L-THYROXINE [Suspect]
     Active Substance: LEVOTHYROXINE
     Indication: PRODUCT USED FOR UNKNOWN INDICATION
     Dosage: 1-0-0
     Route: 065
  4. PANTOPRAZOLE [Concomitant]
     Active Substance: PANTOPRAZOLE SODIUM
     Indication: PRODUCT USED FOR UNKNOWN INDICATION
     Dosage: 1-0-0
  5. ZINC OROTATE [Concomitant]
     Active Substance: ZINC OROTATE
     Indication: PRODUCT USED FOR UNKNOWN INDICATION
     Dosage: 0-0-1
  6. TORASEMIDE [Concomitant]
     Active Substance: TORSEMIDE
     Indication: PRODUCT USED FOR UNKNOWN INDICATION
     Dosage: 1-0-0
  7. URSODEOXYCHOLIC ACID [Concomitant]
     Active Substance: URSODIOL
     Indication: PRODUCT USED FOR UNKNOWN INDICATION
     Dosage: 1-0-1
  8. HUMIRA [Suspect]
     Active Substance: ADALIMUMAB
     Route: 058
     Dates: start: 201112, end: 201210
  9. HYDROCHLOROTHIAZIDE. [Suspect]
     Active Substance: HYDROCHLOROTHIAZIDE
     Indication: PRODUCT USED FOR UNKNOWN INDICATION
     Dosage: 1-0-0
     Route: 065
  10. OLMESARTAN [Suspect]
     Active Substance: OLMESARTAN
     Indication: PRODUCT USED FOR UNKNOWN INDICATION
     Dosage: 1-0-0
     Route: 065
  11. IDEOS [Concomitant]
     Active Substance: CALCIUM CARBONATE\CHOLECALCIFEROL
     Indication: PRODUCT USED FOR UNKNOWN INDICATION
     Dosage: 1-0-1
  12. HUMIRA [Suspect]
     Active Substance: ADALIMUMAB
     Route: 058
     Dates: start: 201301
  13. MAGNESIUM [Concomitant]
     Active Substance: MAGNESIUM
     Indication: PRODUCT USED FOR UNKNOWN INDICATION
     Dosage: 0-0-1
  14. HUMIRA [Suspect]
     Active Substance: ADALIMUMAB
     Indication: PRODUCT USED FOR UNKNOWN INDICATION
     Route: 058
     Dates: start: 201006, end: 201111

REACTIONS (31)
  - Gastrointestinal inflammation [Recovered/Resolved]
  - Cataract [Unknown]
  - Crohn^s disease [Recovered/Resolved]
  - Haemangioma [Unknown]
  - Gastrooesophageal reflux disease [Unknown]
  - Blood alkaline phosphatase increased [Unknown]
  - Gastrointestinal inflammation [Unknown]
  - Hysterectomy [Unknown]
  - Temporal arteritis [Unknown]
  - Hypertension [Unknown]
  - Device issue [Unknown]
  - Gastric mucosal hypertrophy [Unknown]
  - Pain [Recovering/Resolving]
  - Osteopenia [Unknown]
  - Hypercholesterolaemia [Unknown]
  - Fibrous histiocytoma [Unknown]
  - Reactive gastropathy [Unknown]
  - C-reactive protein increased [Unknown]
  - White blood cell count increased [Unknown]
  - Polyp [Unknown]
  - Herpes zoster [Unknown]
  - Blood lactate dehydrogenase increased [Unknown]
  - Frequent bowel movements [Recovering/Resolving]
  - Cholangitis sclerosing [Unknown]
  - Melanocytic naevus [Unknown]
  - Arthralgia [Recovered/Resolved]
  - Haemangioma of liver [Unknown]
  - Thyroidectomy [Unknown]
  - Incorrect dose administered [Unknown]
  - Chronic gastritis [Unknown]
  - Gastrointestinal oedema [Unknown]

NARRATIVE: CASE EVENT DATE: 200903
